FAERS Safety Report 7236311-4 (Version None)
Quarter: 2011Q1

REPORT INFORMATION
  Report Type: 
  Country: None (occurrence: None)
  Receive Date: 20110120
  Receipt Date: 20110117
  Transmission Date: 20110831
  Serious: Yes (Death, Other)
  Sender: FDA-Public Use
  Company Number: JP-GENZYME-THYM-1001556

PATIENT
  Sex: Male
  Weight: 50 kg

DRUGS (17)
  1. PREDNISOLONE [Concomitant]
     Indication: PROPHYLAXIS AGAINST GRAFT VERSUS HOST DISEASE
     Dosage: UNK
     Dates: start: 20100421, end: 20100520
  2. IMIPEM [Concomitant]
     Indication: INFECTION PROPHYLAXIS
     Dosage: UNK
     Dates: start: 20100506, end: 20100513
  3. SULFAMETHOXAZOLE W [Concomitant]
     Indication: ANTIFUNGAL PROPHYLAXIS
     Dosage: UNK
     Dates: start: 20100324, end: 20100330
  4. LEVOFLOXACIN [Concomitant]
     Indication: INFECTION PROPHYLAXIS
     Dosage: UNK
     Dates: start: 20100321, end: 20100521
  5. FLUCONAZOLE [Concomitant]
     Indication: ANTIFUNGAL PROPHYLAXIS
     Dosage: UNK
     Dates: start: 20100324, end: 20100428
  6. MEROPENEM [Concomitant]
     Indication: FEBRILE NEUTROPENIA
     Dosage: UNK
     Dates: start: 20100421, end: 20100430
  7. ITRACONAZOLE [Concomitant]
     Indication: ANTIFUNGAL PROPHYLAXIS
     Dosage: UNK
     Dates: start: 20100317, end: 20100323
  8. METHOTREXATE [Concomitant]
     Indication: PROPHYLAXIS AGAINST GRAFT VERSUS HOST DISEASE
     Dosage: UNK
     Dates: start: 20100401, end: 20100401
  9. METHOTREXATE [Concomitant]
     Dosage: UNK
     Dates: start: 20100403, end: 20100403
  10. METHYLPREDNISOLONE SODIUM SUCCINATE [Concomitant]
     Indication: PREMEDICATION
     Dosage: UNK
     Dates: start: 20100329, end: 20100330
  11. LINEZOLID [Concomitant]
     Indication: ANTIBIOTIC PROPHYLAXIS
     Dosage: UNK
     Dates: start: 20100317, end: 20100326
  12. ACYCLOVIR [Concomitant]
     Indication: ANTIVIRAL PROPHYLAXIS
     Dosage: UNK
     Dates: start: 20100324, end: 20100521
  13. BUSULFAN [Concomitant]
     Indication: ACUTE MYELOID LEUKAEMIA
     Dosage: UNK
     Dates: start: 20100325, end: 20100328
  14. FLUDARABINE PHOSPHATE [Concomitant]
     Indication: ACUTE MYELOID LEUKAEMIA
     Dosage: UNK
     Dates: start: 20100325, end: 20100329
  15. METHOTREXATE [Concomitant]
     Dosage: UNK
     Dates: start: 20100406, end: 20100406
  16. THYMOGLOBULIN [Suspect]
     Indication: BONE MARROW CONDITIONING REGIMEN
     Dosage: 75 MG, QD
     Route: 042
     Dates: start: 20100329, end: 20100330
  17. TEICOPLANIN [Concomitant]
     Indication: STAPHYLOCOCCAL SEPSIS
     Dosage: UNK
     Dates: start: 20100327, end: 20100510

REACTIONS (5)
  - CYTOMEGALOVIRUS TEST POSITIVE [None]
  - PSEUDOMEMBRANOUS COLITIS [None]
  - ASPERGILLUS TEST POSITIVE [None]
  - ACUTE MYELOID LEUKAEMIA RECURRENT [None]
  - STAPHYLOCOCCAL INFECTION [None]
